FAERS Safety Report 24819722 (Version 1)
Quarter: 2025Q1

REPORT INFORMATION
  Report Type: Spontaneous
  Country: US (occurrence: US)
  Receive Date: 20250108
  Receipt Date: 20250108
  Transmission Date: 20250408
  Serious: No
  Sender: IPSEN BIOPHARMACEUTICALS, INC.
  Company Number: US-IPSEN Group, Research and Development-2025-00022

PATIENT
  Age: 51 Year
  Sex: Female

DRUGS (5)
  1. BYLVAY [Suspect]
     Active Substance: ODEVIXIBAT
     Indication: Autoimmune hepatitis
     Dosage: 400MCG 5 CAPSULES ONCE DAILY
     Route: 048
     Dates: start: 20240924
  2. BYLVAY [Suspect]
     Active Substance: ODEVIXIBAT
     Indication: Adrenal insufficiency
  3. BYLVAY [Suspect]
     Active Substance: ODEVIXIBAT
     Indication: Off label use
  4. MYCOPHENOLIC ACID [Concomitant]
     Active Substance: MYCOPHENOLIC ACID
     Dates: start: 202404
  5. URSODIOL [Concomitant]
     Active Substance: URSODIOL
     Dates: start: 202404

REACTIONS (2)
  - Alopecia [Not Recovered/Not Resolved]
  - Off label use [Unknown]

NARRATIVE: CASE EVENT DATE: 20240901
